FAERS Safety Report 12496740 (Version 1)
Quarter: 2016Q2

REPORT INFORMATION
  Report Type: Spontaneous
  Country: IT (occurrence: IT)
  Receive Date: 20160624
  Receipt Date: 20160624
  Transmission Date: 20160815
  Serious: Yes (Hospitalization)
  Sender: FDA-Public Use
  Company Number: IT-TEVA-669563ACC

PATIENT
  Sex: Female

DRUGS (1)
  1. SEASONIQUE [Suspect]
     Active Substance: ETHINYL ESTRADIOL\LEVONORGESTREL
     Indication: FIBROMATOSIS
     Dosage: 1 GRAM DAILY;
     Route: 048

REACTIONS (3)
  - Myalgia [Unknown]
  - Arthralgia [Unknown]
  - Fluid retention [Unknown]
